FAERS Safety Report 9402991 (Version 1)
Quarter: 2013Q3

REPORT INFORMATION
  Report Type: Spontaneous
  Country: JP (occurrence: JP)
  Receive Date: 20130716
  Receipt Date: 20130716
  Transmission Date: 20140515
  Serious: Yes (Other)
  Sender: FDA-Public Use
  Company Number: JP-TEVA-418354ISR

PATIENT
  Age: 26 Year
  Sex: Male

DRUGS (4)
  1. PREDNISOLONE [Suspect]
     Indication: DRUG REACTION WITH EOSINOPHILIA AND SYSTEMIC SYMPTOMS
     Dosage: 40 MILLIGRAM DAILY; 40MG DAILY FOR 21 DAYS, THEN 30MG DAILY FOR 3 WEEKS AND 25MG DAILY FOR 2 WEEKS
     Route: 048
  2. PREDNISOLONE [Suspect]
     Indication: DRUG REACTION WITH EOSINOPHILIA AND SYSTEMIC SYMPTOMS
     Dosage: 30 MILLIGRAM DAILY; 40MG DAILY FOR 21 DAYS THEN 30MG DAILY FOR 3 WEEKS AND 25MG DAILY FOR 2 WEEKS
     Route: 048
  3. PREDNISOLONE [Suspect]
     Dosage: 25 MILLIGRAM DAILY; 40MG DAILY FOR 21 DAYS THEN 30MG DAILY FOR 3 WEEKS AND 25MG DAILY FOR 2 WEEKS
     Route: 048
  4. DAPSONE [Suspect]
     Indication: HENOCH-SCHONLEIN PURPURA
     Dosage: 75 MILLIGRAM DAILY;

REACTIONS (1)
  - Osteonecrosis [Unknown]
